FAERS Safety Report 4733521-2 (Version None)
Quarter: 2005Q3

REPORT INFORMATION
  Report Type: 
  Country: None (occurrence: None)
  Receive Date: 20050803
  Receipt Date: 20050803
  Transmission Date: 20060218
  Serious: No
  Sender: FDA-Public Use
  Company Number: None

PATIENT
  Age: 6 Year
  Sex: Female

DRUGS (9)
  1. ALEMTUZUMAB [Suspect]
     Indication: RASH
     Dosage: 15 MG IV ONCE OVER AT LEAST HOURS
     Route: 042
  2. ALEMTUZUMAB [Suspect]
     Indication: WHEEZING
     Dosage: 15 MG IV ONCE OVER AT LEAST HOURS
     Route: 042
  3. IMMUNE GLOBULIN INTRAVENOUS (HUMAN) [Concomitant]
  4. METHYLPRED [Concomitant]
  5. APAP TAB [Concomitant]
  6. DIPHENHYD [Concomitant]
  7. MYCOPHNOLATE [Concomitant]
  8. NYSTAT [Concomitant]
  9. TMP/SULF [Concomitant]

REACTIONS (3)
  - BRONCHOSPASM [None]
  - RASH [None]
  - WHEEZING [None]
